FAERS Safety Report 17079870 (Version 1)
Quarter: 2019Q4

REPORT INFORMATION
  Report Type: Spontaneous
  Country: US (occurrence: US)
  Receive Date: 20191127
  Receipt Date: 20191127
  Transmission Date: 20200122
  Serious: No
  Sender: FDA-Public Use
  Company Number: US-ASTRAZENECA-2019SF55702

PATIENT
  Sex: Female

DRUGS (2)
  1. FASENRA [Suspect]
     Active Substance: BENRALIZUMAB
     Indication: ASTHMA
     Dosage: 30.0MG UNKNOWN
     Route: 058
  2. NUCALA [Concomitant]
     Active Substance: MEPOLIZUMAB
     Dosage: UNKNOWN
     Route: 065

REACTIONS (2)
  - Respiration abnormal [Unknown]
  - Symptom recurrence [Unknown]
